FAERS Safety Report 23696791 (Version 1)
Quarter: 2024Q2

REPORT INFORMATION
  Report Type: Spontaneous
  Country: US (occurrence: None)
  Receive Date: 20240401
  Receipt Date: 20240401
  Transmission Date: 20240716
  Serious: No
  Sender: FDA-Public Use
  Company Number: None

PATIENT
  Age: 26 Year
  Sex: Male
  Weight: 68.1 kg

DRUGS (1)
  1. CEFTRIAXONE [Suspect]
     Active Substance: CEFTRIAXONE\CEFTRIAXONE SODIUM
     Dosage: FREQUENCY : DAILY;?
     Route: 042

REACTIONS (4)
  - Hypersensitivity [None]
  - Face oedema [None]
  - Pharyngeal oedema [None]
  - Oxygen saturation decreased [None]

NARRATIVE: CASE EVENT DATE: 20240325
